FAERS Safety Report 20818948 (Version 1)
Quarter: 2022Q2

REPORT INFORMATION
  Report Type: Spontaneous
  Country: US (occurrence: None)
  Receive Date: 20220511
  Receipt Date: 20220511
  Transmission Date: 20220721
  Serious: No
  Sender: FDA-Public Use
  Company Number: None

PATIENT
  Age: 70 Year
  Sex: Female

DRUGS (1)
  1. CAPECITABINE [Suspect]
     Active Substance: CAPECITABINE
     Indication: Breast cancer
     Dosage: FREQUENCY: TWICE A DAY?
     Route: 048
     Dates: start: 202203

REACTIONS (7)
  - Peripheral swelling [None]
  - Stomatitis [None]
  - Peripheral swelling [None]
  - Hot flush [None]
  - Fatigue [None]
  - Pain in extremity [None]
  - Skin discolouration [None]

NARRATIVE: CASE EVENT DATE: 20220420
